FAERS Safety Report 6371432-X (Version None)
Quarter: 2009Q3

REPORT INFORMATION
  Report Type: 
  Country: None (occurrence: None)
  Receive Date: 20090923
  Receipt Date: 20090618
  Transmission Date: 20100115
  Serious: No
  Sender: FDA-Public Use
  Company Number: US-ASTRAZENECA-2007UW10995

PATIENT
  Age: 17917 Day
  Sex: Male
  Weight: 80.7 kg

DRUGS (6)
  1. SEROQUEL [Suspect]
     Indication: SCHIZOPHRENIA
     Route: 048
     Dates: start: 20011001, end: 20061001
  2. SEROQUEL [Suspect]
     Indication: DEPRESSION
     Route: 048
     Dates: start: 20011001, end: 20061001
  3. SERTRALINE HCL [Concomitant]
  4. THORAZINE [Concomitant]
  5. ZOLOFT [Concomitant]
  6. DIAZEPAM [Concomitant]

REACTIONS (1)
  - TYPE 2 DIABETES MELLITUS [None]
